FAERS Safety Report 7780326-4 (Version None)
Quarter: 2011Q3

REPORT INFORMATION
  Report Type: 
  Country: None (occurrence: None)
  Receive Date: 20110927
  Receipt Date: 20110920
  Transmission Date: 20111222
  Serious: Yes (Other)
  Sender: FDA-Public Use
  Company Number: BR-B.I. PHARMACEUTICALS,INC./RIDGEFIELD-2011-BR-01003BR

PATIENT
  Sex: Male

DRUGS (1)
  1. SECOTEX ADV [Suspect]
     Indication: NEPHROLITHIASIS
     Dosage: 0.4 MG
     Route: 048
     Dates: start: 20110917

REACTIONS (1)
  - HYPERTENSION [None]
